FAERS Safety Report 18067235 (Version 3)
Quarter: 2020Q3

REPORT INFORMATION
  Report Type: Report from Study
  Country: CA (occurrence: CA)
  Receive Date: 20200724
  Receipt Date: 20200811
  Transmission Date: 20201103
  Serious: Yes (Life-Threatening, Other)
  Sender: FDA-Public Use
  Company Number: CA-SA-2020SA105875

PATIENT

DRUGS (21)
  1. ZITHROMAX [Concomitant]
     Active Substance: AZITHROMYCIN DIHYDRATE
     Indication: PRE-EXISTING DISEASE
     Dosage: 500 MG, QD
     Route: 042
     Dates: start: 20200416, end: 20200421
  2. MAXERAN [Concomitant]
     Active Substance: METOCLOPRAMIDE HYDROCHLORIDE
     Indication: PRE-EXISTING DISEASE
     Dosage: 10 MG, QID
     Route: 048
     Dates: start: 20200417, end: 20200417
  3. SUBLIMAZE [FENTANYL] [Concomitant]
     Indication: PRE-EXISTING DISEASE
     Dosage: 1250MCG/125ML, CONT
     Route: 042
     Dates: start: 20200415, end: 20200524
  4. ABENOL [Concomitant]
     Active Substance: ACETAMINOPHEN
     Indication: HYPERTHERMIA
     Dosage: 975 MG, Q6H, PRN
     Route: 054
     Dates: start: 20200417, end: 20200501
  5. LEVOPHED [Concomitant]
     Active Substance: NOREPINEPHRINE BITARTRATE
     Dosage: 8 MG, CONT
     Route: 042
     Dates: start: 20200417, end: 20200417
  6. TYLENOL [Concomitant]
     Active Substance: ACETAMINOPHEN
     Indication: HYPERTHERMIA
     Dosage: 975 MG, QID, PRN
     Route: 048
     Dates: start: 20200416, end: 20200416
  7. TAZOCIN [Concomitant]
     Active Substance: PIPERACILLIN SODIUM\TAZOBACTAM SODIUM
     Indication: PROPHYLAXIS
     Dosage: 3375 MG, Q6H
     Route: 042
     Dates: start: 20200415, end: 20200422
  8. LAX?A?DAY [Concomitant]
     Active Substance: POLYETHYLENE GLYCOL 3350
     Indication: PRE-EXISTING DISEASE
     Dosage: 17 G, PRN
     Route: 048
     Dates: start: 20200416, end: 20200612
  9. LASIX [Concomitant]
     Active Substance: FUROSEMIDE
     Indication: PRE-EXISTING DISEASE
     Dosage: 10 MG, 1X
     Route: 042
     Dates: start: 20200417, end: 20200417
  10. PHOSPHORE [AMMONIUM PHOSPHATE,DIBASIC;MANGANESE GLYCEROPHOSPHATE;POTAS [Concomitant]
     Dosage: 500 MG, BID
     Route: 048
     Dates: start: 20200417, end: 20200418
  11. SARILUMAB [Suspect]
     Active Substance: SARILUMAB
     Indication: CORONAVIRUS INFECTION
     Dosage: 1X,INTENDED AND ACTUAL DOSE: 1 BAG, INFUSION RATE 135 ML/HR
     Route: 042
     Dates: start: 20200417, end: 20200417
  12. PEPCID [Concomitant]
     Active Substance: FAMOTIDINE
     Indication: PROPHYLAXIS
     Dosage: 20 MG, BID
     Route: 042
     Dates: start: 20200416, end: 20200422
  13. DOXYCYCLINE. [Concomitant]
     Active Substance: DOXYCYCLINE
     Indication: PROPHYLAXIS
     Dosage: 100 MG, BID
     Route: 048
     Dates: start: 20200415, end: 20200416
  14. LOVENOX [Concomitant]
     Active Substance: ENOXAPARIN SODIUM
     Indication: PROPHYLAXIS
     Dosage: 40 MG, QD
     Route: 058
     Dates: start: 20200416, end: 20200418
  15. INSULINA HUMULIN R [Concomitant]
     Indication: DIABETES MELLITUS
     Dosage: 25 U, CONT
     Route: 042
     Dates: start: 20200417, end: 20200418
  16. LASIX [Concomitant]
     Active Substance: FUROSEMIDE
     Dosage: 20 MG, Q8H
     Route: 042
     Dates: start: 20200417, end: 20200418
  17. 5% DEXTROSE [Concomitant]
     Active Substance: DEXTROSE
     Indication: PROPHYLAXIS
     Dosage: 1 DF(1 BAG), CONT; 5% DEXTROSE IN WATER (D5W) 253 MOSM/L 5 G DEXTROSE/100ML 50 G DEXTROSE/L 170
     Route: 042
     Dates: start: 20200415, end: 20200416
  18. LEVOPHED [Concomitant]
     Active Substance: NOREPINEPHRINE BITARTRATE
     Dosage: 8 MG, CONT
     Route: 042
     Dates: start: 20200417, end: 20200527
  19. DIPRIVAN [Concomitant]
     Active Substance: PROPOFOL
     Indication: PRE-EXISTING DISEASE
     Dosage: 10 MG, CONT
     Route: 042
     Dates: start: 20200415, end: 20200513
  20. LACTATED RINGERS SOLUTION [Concomitant]
     Active Substance: CALCIUM CHLORIDE\POTASSIUM CHLORIDE\SODIUM CHLORIDE\SODIUM LACTATE
     Indication: PROPHYLAXIS
     Dosage: 1 DF (BAG), CONT
     Route: 042
     Dates: start: 20200415, end: 20200416
  21. NIMBEX [NIMESULIDE] [Concomitant]
     Active Substance: NIMESULIDE
     Indication: PRE-EXISTING DISEASE
     Dosage: (2 MCG/KG/MIN), CONT
     Route: 042
     Dates: start: 20200303, end: 20200504

REACTIONS (1)
  - Respiratory failure [Recovered/Resolved with Sequelae]

NARRATIVE: CASE EVENT DATE: 20200417
